FAERS Safety Report 5376809-7 (Version None)
Quarter: 2007Q3

REPORT INFORMATION
  Report Type: 
  Country: None (occurrence: None)
  Receive Date: 20070703
  Receipt Date: 20070626
  Transmission Date: 20080115
  Serious: Yes (Other)
  Sender: FDA-Public Use
  Company Number: PHBS2007NL10795

PATIENT
  Sex: Male

DRUGS (2)
  1. DIOVAN [Suspect]
     Indication: HYPERTENSION
     Dosage: 80 MG/DAY
     Route: 048
  2. DIOVAN [Suspect]
     Dosage: 160 MG/DAY
     Route: 048

REACTIONS (3)
  - HYPERTENSION [None]
  - POLLAKIURIA [None]
  - WEIGHT DECREASED [None]
